FAERS Safety Report 8845776 (Version 1)
Quarter: 2012Q4

REPORT INFORMATION
  Report Type: 
  Country: AU (occurrence: AU)
  Receive Date: 20121017
  Receipt Date: 20121017
  Transmission Date: 20130627
  Serious: Yes (Other)
  Sender: FDA-Public Use
  Company Number: AU-ROCHE-795776

PATIENT
  Age: 86 Year
  Sex: Male

DRUGS (6)
  1. CEFTRIAXONE SODIUM [Suspect]
     Indication: PRODUCT USED FOR UNKNOWN INDICATION
     Route: 042
     Dates: start: 20110516, end: 20110525
  2. VANCOMYCIN HYDROCHLORIDE [Suspect]
     Indication: PRODUCT USED FOR UNKNOWN INDICATION
     Route: 065
     Dates: start: 20110515, end: 20110525
  3. ATORVASTATIN [Concomitant]
     Route: 065
  4. FLUCLOXACILLIN SODIUM [Concomitant]
     Route: 065
  5. GENTAMICIN SULPHATE [Concomitant]
     Route: 065
  6. METRONIDAZOLE [Concomitant]
     Route: 065

REACTIONS (1)
  - Liver function test abnormal [Recovered/Resolved]
